FAERS Safety Report 22004820 (Version 3)
Quarter: 2024Q2

REPORT INFORMATION
  Report Type: Report from Study
  Country: JP (occurrence: JP)
  Receive Date: 20230217
  Receipt Date: 20240430
  Transmission Date: 20240716
  Serious: Yes (Hospitalization, Other)
  Sender: FDA-Public Use
  Company Number: JP-GLAXOSMITHKLINE-JP2021JPN267561

PATIENT

DRUGS (11)
  1. BELIMUMAB [Suspect]
     Active Substance: BELIMUMAB
     Indication: Systemic lupus erythematosus
     Dosage: 200 MG, WE
     Route: 058
     Dates: start: 20190118
  2. PREDNISOLONE [Suspect]
     Active Substance: PREDNISOLONE
     Indication: Systemic lupus erythematosus
     Dosage: 10 MG, 1D
     Route: 048
     Dates: start: 201307
  3. PREDNISOLONE [Suspect]
     Active Substance: PREDNISOLONE
     Dosage: 5 MG, BID, AFTER BREAKFAST AND DINNER
     Route: 048
     Dates: start: 20180409
  4. REBAMIPIDE [Concomitant]
     Active Substance: REBAMIPIDE
     Indication: Prophylaxis
     Dosage: 100 MG, BID, 250 MG BID, AFTER BREAKFAST AND DINNER
     Route: 048
  5. MAGNESIUM OXIDE [Concomitant]
     Active Substance: MAGNESIUM OXIDE
     Indication: Prophylaxis
     Dosage: 250 MG, BID, AFTER BREAKFAST AND DINNER
     Route: 048
  6. MAGNESIUM OXIDE [Concomitant]
     Active Substance: MAGNESIUM OXIDE
     Indication: Drug therapy
  7. ELDECALCITOL [Concomitant]
     Active Substance: ELDECALCITOL
     Dosage: 1 DF, QD
  8. CELLCEPT [Concomitant]
     Active Substance: MYCOPHENOLATE MOFETIL
     Indication: Systemic lupus erythematosus
     Dosage: 750 MG, 1D (500 MG AFTER BREAKFAST, 250 MG AFTER DINNER)
     Route: 048
     Dates: start: 20200801, end: 20211208
  9. SENNOSIDES [Concomitant]
     Active Substance: SENNOSIDES
     Indication: Constipation
     Dosage: 12 MG, PRN
  10. Rinderon [Concomitant]
     Dosage: UNK, QD
     Route: 061
  11. LOXOPROFEN [Concomitant]
     Active Substance: LOXOPROFEN
     Dosage: 60 MG, QD, AFTER BREAKFAST
     Dates: start: 20211104

REACTIONS (4)
  - Gestational hypertension [Recovered/Resolved]
  - Gestational diabetes [Recovered/Resolved]
  - Premature delivery [Recovered/Resolved]
  - Exposure during pregnancy [Unknown]

NARRATIVE: CASE EVENT DATE: 20221013
